FAERS Safety Report 5243344-6 (Version None)
Quarter: 2007Q1

REPORT INFORMATION
  Report Type: 
  Country: None (occurrence: None)
  Receive Date: 20061201
  Receipt Date: 20060713
  Transmission Date: 20070707
  Serious: No
  Sender: FDA-Public Use
  Company Number: 2006PV009403

PATIENT
  Age: 41 Year
  Sex: Female
  Weight: 109.7705 kg

DRUGS (6)
  1. BYETTA [Suspect]
     Indication: DIABETES MELLITUS NON-INSULIN-DEPENDENT
     Dosage: 5 MCG/QD,SC
     Route: 058
     Dates: start: 20060101, end: 20060201
  2. BYETTA [Suspect]
     Indication: DIABETES MELLITUS NON-INSULIN-DEPENDENT
     Dosage: 5 MCG/QD,SC
     Route: 058
     Dates: start: 20060201, end: 20060224
  3. BYETTA [Suspect]
     Indication: DIABETES MELLITUS NON-INSULIN-DEPENDENT
     Dosage: 5 MCG/QD,SC
     Route: 058
     Dates: start: 20050501
  4. METFORMIN [Concomitant]
  5. AMITRIPTYLINE HCL [Concomitant]
  6. ADVAIR DISKUS 100/50 [Concomitant]

REACTIONS (9)
  - ARTHRALGIA [None]
  - CONDITION AGGRAVATED [None]
  - FATIGUE [None]
  - INJECTION SITE PAIN [None]
  - LETHARGY [None]
  - MEDICATION ERROR [None]
  - NECK PAIN [None]
  - PALLOR [None]
  - SOMNOLENCE [None]
